FAERS Safety Report 7440138-8 (Version None)
Quarter: 2011Q2

REPORT INFORMATION
  Report Type: 
  Country: None (occurrence: None)
  Receive Date: 20110427
  Receipt Date: 20110420
  Transmission Date: 20111010
  Serious: Yes (Death)
  Sender: FDA-Public Use
  Company Number: US-CELGENEUS-163-21880-11032400

PATIENT
  Sex: Female

DRUGS (23)
  1. CALCIUM CARBONATE [Concomitant]
     Dosage: 750 MILLIGRAM
     Route: 048
  2. MELPHALAN [Concomitant]
     Dosage: 14 MILLIGRAM
     Route: 048
  3. MORPHINE [Concomitant]
     Indication: PAIN
  4. INSULIN DETEMIR [Concomitant]
     Dosage: 100UNITS/ML
     Route: 058
  5. PREDNISONE [Concomitant]
     Dosage: 80 MILLIGRAM
     Route: 048
  6. FUROSEMIDE [Concomitant]
     Route: 048
  7. LOSARTAN POTASSIUM [Concomitant]
     Dosage: 100 MILLIGRAM
     Route: 048
  8. MORPHINE SULFATE [Concomitant]
     Indication: PAIN
     Dosage: 5-10MG
     Route: 065
  9. ASPIRIN [Concomitant]
     Dosage: 81 MILLIGRAM
     Route: 048
  10. COUMADIN [Concomitant]
     Indication: ANTICOAGULANT THERAPY
     Dosage: 3 MILLIGRAM
     Route: 048
  11. DILTIAZEM [Concomitant]
     Dosage: 240 MILLIGRAM
     Route: 048
  12. INSULIN ISOPHANE [Concomitant]
     Dosage: 34UNITS
     Route: 058
  13. POTASSIUM CHLORIDE [Concomitant]
     Dosage: 20 MILLIEQUIVALENTS
     Route: 048
  14. GLIPIZIDE [Concomitant]
     Route: 048
  15. ONDANSETRON [Concomitant]
     Dosage: 8 MILLIGRAM
     Route: 048
  16. PRAVASTATIN [Concomitant]
     Dosage: 20 MILLIGRAM
     Route: 048
  17. REVLIMID [Suspect]
     Indication: MULTIPLE MYELOMA
     Dosage: 10 MILLIGRAM
     Route: 048
     Dates: start: 20100701
  18. ALLOPURINOL [Concomitant]
     Dosage: 100 MILLIGRAM
     Route: 048
  19. MORPHINE [Concomitant]
     Dosage: 5-10MG
     Route: 048
  20. FERROUS SULFATE TAB [Concomitant]
     Dosage: 325 MILLIGRAM
     Route: 048
  21. METOPROLOL [Concomitant]
     Dosage: 100 MILLIGRAM
     Route: 048
  22. PROCHLORPERAZINE TAB [Concomitant]
     Dosage: 10 MILLIGRAM
     Route: 048
  23. RABEPRAZOLE SODIUM [Concomitant]
     Dosage: 20 MILLIGRAM
     Route: 048

REACTIONS (3)
  - ISCHAEMIC STROKE [None]
  - HAEMORRHAGIC TRANSFORMATION STROKE [None]
  - INTRACRANIAL PRESSURE INCREASED [None]
